FAERS Safety Report 20347814 (Version 1)
Quarter: 2022Q1

REPORT INFORMATION
  Report Type: Report from Study
  Country: US (occurrence: US)
  Receive Date: 20220118
  Receipt Date: 20220118
  Transmission Date: 20220423
  Serious: Yes (Other)
  Sender: FDA-Public Use
  Company Number: US-TAKEDA-US202030971

PATIENT
  Sex: Female

DRUGS (1)
  1. HUMAN IMMUNOGLOBULIN G\HYALURONIDASE RECOMBINANT HUMAN [Suspect]
     Active Substance: HUMAN IMMUNOGLOBULIN G\HYALURONIDASE RECOMBINANT HUMAN
     Indication: Primary immunodeficiency syndrome
     Dosage: UNK
     Route: 065

REACTIONS (19)
  - COVID-19 pneumonia [Not Recovered/Not Resolved]
  - Weight increased [Unknown]
  - Frustration tolerance decreased [Unknown]
  - Hypersomnia [Unknown]
  - Lymphadenopathy [Unknown]
  - Pain [Unknown]
  - Muscle twitching [Unknown]
  - Hair colour changes [Unknown]
  - Blood pressure increased [Unknown]
  - Abdominal distension [Unknown]
  - Malaise [Unknown]
  - Fatigue [Unknown]
  - Ligament sprain [Unknown]
  - Pain in extremity [Unknown]
  - Pyrexia [Recovering/Resolving]
  - Incorrect dose administered [Unknown]
  - Device issue [Unknown]
  - Therapy interrupted [Unknown]
  - Device programming error [Unknown]
